FAERS Safety Report 4817983-8 (Version None)
Quarter: 2005Q4

REPORT INFORMATION
  Report Type: 
  Country: None (occurrence: None)
  Receive Date: 20051102
  Receipt Date: 20051021
  Transmission Date: 20060501
  Serious: Yes (Other)
  Sender: FDA-Public Use
  Company Number: US-JNJFOC-20050905358

PATIENT
  Sex: Male
  Weight: 94.17 kg

DRUGS (10)
  1. REMICADE [Suspect]
     Dosage: INITIAL DOSE
     Route: 042
  2. REMICADE [Suspect]
     Route: 042
  3. REMICADE [Suspect]
     Dosage: TOTAL OF 15 INFUSIONS
     Route: 042
  4. METHOTREXATE [Concomitant]
  5. DIOVAN HCT [Concomitant]
  6. DIOVAN HCT [Concomitant]
     Indication: HYPERTENSION
  7. TOPROL-XL [Concomitant]
     Indication: HYPERTENSION
  8. NORVASC [Concomitant]
     Indication: HYPERTENSION
  9. FOLIC ACID [Concomitant]
  10. PREDNISONE [Concomitant]

REACTIONS (2)
  - EXOSTOSIS [None]
  - LUPUS-LIKE SYNDROME [None]
